FAERS Safety Report 10358242 (Version 1)
Quarter: 2014Q3

REPORT INFORMATION
  Report Type: Spontaneous
  Country: US (occurrence: US)
  Receive Date: 20140801
  Receipt Date: 20140801
  Transmission Date: 20150326
  Serious: Yes (Hospitalization)
  Sender: FDA-Public Use
  Company Number: US-BAYER-2014-110726

PATIENT
  Age: 68 Year
  Sex: Male

DRUGS (3)
  1. BAYER GENUINE ASPIRIN [Suspect]
     Active Substance: ASPIRIN
     Dosage: UNK
  2. IBRUTINIB [Suspect]
     Active Substance: IBRUTINIB
     Indication: CHRONIC LYMPHOCYTIC LEUKAEMIA
     Dosage: 280 MG, UNK
     Dates: start: 20140502
  3. APIXABAN [Suspect]
     Active Substance: APIXABAN

REACTIONS (5)
  - Upper gastrointestinal haemorrhage [None]
  - Gastric ulcer [None]
  - Duodenal ulcer haemorrhage [None]
  - Vomiting [None]
  - Melaena [None]

NARRATIVE: CASE EVENT DATE: 20140502
